FAERS Safety Report 4523628-7 (Version None)
Quarter: 2004Q4

REPORT INFORMATION
  Report Type: 
  Country: None (occurrence: None)
  Receive Date: 20041210
  Receipt Date: 20040311
  Transmission Date: 20050328
  Serious: Yes (Hospitalization, Other)
  Sender: FDA-Public Use
  Company Number: 200410874JP

PATIENT
  Age: 64 Year
  Sex: Female

DRUGS (4)
  1. ARAVA [Suspect]
     Indication: RHEUMATOID ARTHRITIS
     Route: 048
     Dates: start: 20040115, end: 20040211
  2. PREDNISOLONE [Concomitant]
     Indication: ANTIINFLAMMATORY THERAPY
     Route: 048
  3. MUCOSTA [Concomitant]
     Indication: GASTROINTESTINAL MUCOSAL DISORDER
     Route: 048
  4. LANSOPRAZOLE [Concomitant]
     Indication: REFLUX OESOPHAGITIS
     Route: 048

REACTIONS (4)
  - DIARRHOEA [None]
  - HEADACHE [None]
  - HYPERTENSION [None]
  - MELAENA [None]
